FAERS Safety Report 19559419 (Version 1)
Quarter: 2021Q3

REPORT INFORMATION
  Report Type: Report from Study
  Country: DE (occurrence: DE)
  Receive Date: 20210715
  Receipt Date: 20210715
  Transmission Date: 20211014
  Serious: Yes (Hospitalization, Other)
  Sender: FDA-Public Use
  Company Number: DE-PFIZER INC-2021737114

PATIENT
  Age: 59 Year
  Sex: Female

DRUGS (4)
  1. FLUOROURACIL. [Suspect]
     Active Substance: FLUOROURACIL
     Indication: OVARIAN CANCER STAGE III
     Dosage: UNK
  2. METHOTREXATE SODIUM. [Suspect]
     Active Substance: METHOTREXATE SODIUM
     Indication: OVARIAN CANCER STAGE III
     Dosage: UNK
  3. HEXAMETHYLMELAMINE [Suspect]
     Active Substance: ALTRETAMINE
     Indication: OVARIAN CANCER STAGE III
     Dosage: UNK
  4. CYCLOPHOSPHAMIDE. [Suspect]
     Active Substance: CYCLOPHOSPHAMIDE
     Indication: OVARIAN CANCER STAGE III
     Dosage: UNK

REACTIONS (3)
  - Stomatitis [Unknown]
  - Myelosuppression [Recovering/Resolving]
  - Haemorrhage [Unknown]
